FAERS Safety Report 15790512 (Version 1)
Quarter: 2019Q1

REPORT INFORMATION
  Report Type: Report from Study
  Country: US (occurrence: US)
  Receive Date: 20190104
  Receipt Date: 20190104
  Transmission Date: 20190417
  Serious: Yes (Other)
  Sender: FDA-Public Use
  Company Number: US-AMGEN INC.-USASL2018170792

PATIENT
  Age: 45 Year
  Sex: Female
  Weight: 54.42 kg

DRUGS (1)
  1. AIMOVIG [Suspect]
     Active Substance: ERENUMAB-AOOE
     Indication: PRODUCT USED FOR UNKNOWN INDICATION
     Dosage: UNK
     Route: 065
     Dates: start: 2018

REACTIONS (2)
  - Influenza like illness [Recovered/Resolved]
  - Immune-mediated adverse reaction [Recovered/Resolved]

NARRATIVE: CASE EVENT DATE: 2018
